FAERS Safety Report 4289784-3 (Version None)
Quarter: 2004Q1

REPORT INFORMATION
  Report Type: 
  Country: None (occurrence: None)
  Receive Date: 20040209
  Receipt Date: 20040120
  Transmission Date: 20041129
  Serious: Yes (Hospitalization)
  Sender: FDA-Public Use
  Company Number: B0319624A

PATIENT
  Age: 86 Year
  Sex: Male
  Weight: 91.808 kg

DRUGS (8)
  1. VALTREX [Suspect]
     Indication: RASH VESICULAR
     Dosage: 1 GRAM (S) THREE TIMES PER DAY/ORAL
     Route: 048
  2. CORTISPORIN [Concomitant]
  3. ASPIRIN [Concomitant]
  4. MOEXIPRIL HCL [Concomitant]
  5. SERTRALINE HCL [Concomitant]
  6. TAMSULOSIN HCL [Concomitant]
  7. HYDROCHLOROTHIAZIDE [Concomitant]
  8. TRIAMTERENE [Concomitant]

REACTIONS (20)
  - ASTHENIA [None]
  - BALANCE DISORDER [None]
  - BLOOD CREATININE INCREASED [None]
  - BLOOD UREA INCREASED [None]
  - COMA [None]
  - CSF PROTEIN INCREASED [None]
  - CSF TEST ABNORMAL [None]
  - DECREASED APPETITE [None]
  - DIFFICULTY IN WALKING [None]
  - ENCEPHALITIS [None]
  - FALL [None]
  - GAIT DISTURBANCE [None]
  - LETHARGY [None]
  - MENINGITIS ASEPTIC [None]
  - MUSCULOSKELETAL STIFFNESS [None]
  - RENAL CYST [None]
  - RENAL DISORDER [None]
  - SCAB [None]
  - TONIC CLONIC MOVEMENTS [None]
  - WHITE BLOOD CELL COUNT INCREASED [None]
